FAERS Safety Report 17654845 (Version 2)
Quarter: 2020Q2

REPORT INFORMATION
  Report Type: Spontaneous
  Country: CN (occurrence: CN)
  Receive Date: 20200410
  Receipt Date: 20200417
  Transmission Date: 20200713
  Serious: Yes (Other)
  Sender: FDA-Public Use
  Company Number: CN-ASTRAZENECA-2020SE48781

PATIENT
  Age: 70 Year
  Sex: Male

DRUGS (3)
  1. NOVOLINE [Concomitant]
     Indication: DIABETES MELLITUS
  2. FORXIGA [Suspect]
     Active Substance: DAPAGLIFLOZIN
     Indication: DIABETES MELLITUS
     Route: 048
     Dates: start: 20200101, end: 20200103
  3. NOVOLINE [Concomitant]
     Indication: DIABETES MELLITUS
     Dates: start: 20200102

REACTIONS (4)
  - Decreased appetite [Unknown]
  - Ketoacidosis [Recovered/Resolved]
  - Suffocation feeling [Unknown]
  - Orthostatic hypotension [Unknown]

NARRATIVE: CASE EVENT DATE: 20200101
